FAERS Safety Report 4933678-4 (Version None)
Quarter: 2006Q1

REPORT INFORMATION
  Report Type: 
  Country: None (occurrence: None)
  Receive Date: 20060306
  Receipt Date: 20060224
  Transmission Date: 20060701
  Serious: Yes (Hospitalization)
  Sender: FDA-Public Use
  Company Number: 2006UW03406

PATIENT
  Sex: Female

DRUGS (3)
  1. NEXIUM [Suspect]
     Indication: GASTROOESOPHAGEAL REFLUX DISEASE
     Route: 048
     Dates: start: 20040101, end: 20050801
  2. CALCIUM GLUCONATE [Concomitant]
  3. VITAMIN D [Concomitant]

REACTIONS (11)
  - BLOOD PRESSURE INCREASED [None]
  - CARDIAC DISCOMFORT [None]
  - CHEST PAIN [None]
  - FLANK PAIN [None]
  - HEPATIC ENZYME ABNORMAL [None]
  - HEPATIC ENZYME INCREASED [None]
  - NECK PAIN [None]
  - OESOPHAGEAL SPASM [None]
  - PAIN [None]
  - PAIN IN JAW [None]
  - TOOTHACHE [None]
